FAERS Safety Report 6534780-6 (Version None)
Quarter: 2010Q1

REPORT INFORMATION
  Report Type: 
  Country: None (occurrence: None)
  Receive Date: 20100112
  Receipt Date: 20091228
  Transmission Date: 20100710
  Serious: Yes (Hospitalization)
  Sender: FDA-Public Use
  Company Number: JP-PFIZER INC-2009312164

PATIENT
  Age: 51 Year
  Sex: Male

DRUGS (18)
  1. ADRIACIN [Suspect]
     Indication: MULTIPLE MYELOMA
     Dosage: 16 MG, 1X/DAY
     Route: 041
     Dates: start: 20080108, end: 20080111
  2. ONCOVIN [Suspect]
     Indication: MULTIPLE MYELOMA
     Dosage: 0.4 MG, 1X/DAY
     Route: 041
     Dates: start: 20080108, end: 20080111
  3. DECADRON [Concomitant]
     Dosage: 40 MG, 1X/DAY IJ
     Route: 048
     Dates: start: 20080108, end: 20080111
  4. SELBEX [Concomitant]
     Dosage: 50 MG, 3X/DAY
     Route: 048
     Dates: start: 20080104, end: 20080104
  5. SENNARIDE [Concomitant]
     Dosage: 24 MG, 1X/DAY
     Route: 048
     Dates: start: 20080104, end: 20080105
  6. MEIACT [Concomitant]
     Dosage: 100 MG, 3X/DAY
     Route: 048
     Dates: start: 20080104, end: 20080105
  7. TORASEMIDE [Concomitant]
     Dosage: 4 MG, 1X/DAY
     Route: 048
     Dates: start: 20080105
  8. LOXONIN [Concomitant]
     Dosage: 60 MG, 3X/DAY
     Route: 048
     Dates: start: 20080105, end: 20080108
  9. MAXIPIME [Concomitant]
     Dosage: 1 G, 2X/DAY IJ
     Dates: start: 20080105, end: 20080121
  10. FAMOTIDINE [Concomitant]
     Dosage: 20 MG, 2X/DAY
     Route: 048
     Dates: start: 20080107
  11. BAKTAR [Concomitant]
     Dosage: 1 G, 1X/DAY
     Route: 048
     Dates: start: 20080107
  12. ALLOPURINOL [Concomitant]
     Dosage: 100 MG, 2X/DAY
     Route: 048
     Dates: start: 20080107
  13. ZOFRAN [Concomitant]
     Dosage: 4 MG, 1X/DAY , IJ
     Dates: start: 20080108, end: 20080111
  14. MEYLON [Concomitant]
     Dosage: 20 MG, 2X/DAY, IJ
     Dates: start: 20080108, end: 20080111
  15. LASIX [Concomitant]
     Dosage: 20 MG, 2X/DAY, IJ
     Dates: start: 20080108, end: 20080207
  16. PRIMPERAN TAB [Concomitant]
     Dosage: 5 MG, 3X/DAY
     Route: 048
     Dates: start: 20080109
  17. SHAKUYAKU-KANZO-TO [Concomitant]
     Dosage: 2.5 MG, 3X/DAY
     Route: 048
     Dates: start: 20080110, end: 20080112
  18. COMELIAN [Concomitant]
     Dosage: 50 MG, 3X/DAY
     Route: 048
     Dates: start: 20080111

REACTIONS (1)
  - TUMOUR LYSIS SYNDROME [None]
